FAERS Safety Report 9388917 (Version 1)
Quarter: 2013Q3

REPORT INFORMATION
  Report Type: Spontaneous
  Country: GB (occurrence: GB)
  Receive Date: 20130708
  Receipt Date: 20130708
  Transmission Date: 20140515
  Serious: Yes (Life-Threatening, Hospitalization)
  Sender: FDA-Public Use
  Company Number: PHHY2013GB071421

PATIENT
  Sex: Male

DRUGS (4)
  1. FOLINIC ACID [Suspect]
  2. IRINOTECAN [Suspect]
  3. 5-FLUOROURACIL [Suspect]
  4. AFLIBERCEPT [Suspect]
     Indication: COLORECTAL CANCER METASTATIC
     Dosage: 4 MG/KG, QW2
     Route: 042

REACTIONS (1)
  - Upper gastrointestinal haemorrhage [Recovering/Resolving]
